FAERS Safety Report 8797227 (Version 1)
Quarter: 2012Q4

REPORT INFORMATION
  Report Type: 
  Country: US (occurrence: US)
  Receive Date: 20120919
  Receipt Date: 20120919
  Transmission Date: 20130627
  Serious: Yes (Hospitalization)
  Sender: FDA-Public Use
  Company Number: US-ARROW-2012-15879

PATIENT
  Age: 8 Year
  Sex: Female
  Weight: 19 kg

DRUGS (5)
  1. MORPHINE SULFATE (UNKNOWN) [Suspect]
     Indication: CANCER PAIN
     Dosage: 1.5 mg, q1h
     Route: 042
  2. MORPHINE SULFATE (UNKNOWN) [Suspect]
     Dosage: 2 mg, q1h
     Route: 042
  3. MORPHINE SULFATE (UNKNOWN) [Suspect]
     Dosage: Boluses x 2
     Route: 042
  4. MORPHINE SULFATE (UNKNOWN) [Suspect]
     Dosage: 96 mg, daily
     Route: 042
  5. FENTANYL (UNKNOWN) [Suspect]
     Indication: CANCER PAIN
     Route: 062

REACTIONS (3)
  - Constipation [Recovered/Resolved]
  - Nausea [None]
  - General physical health deterioration [None]
